FAERS Safety Report 9180981 (Version 1)
Quarter: 2013Q1

REPORT INFORMATION
  Report Type: Report from Study
  Country: CA (occurrence: CA)
  Receive Date: 20130322
  Receipt Date: 20130322
  Transmission Date: 20140127
  Serious: Yes (Death, Hospitalization, Other)
  Sender: FDA-Public Use
  Company Number: PHHY2013CA027791

PATIENT
  Age: 33 None
  Sex: Male

DRUGS (4)
  1. CLOZARIL [Suspect]
     Dosage: UNK
     Dates: start: 20060307
  2. RISPERDAL CONSTA [Concomitant]
     Dosage: UNK
  3. ZYPREXA [Concomitant]
     Dosage: UNK
  4. INVEGA SUSTENNA [Concomitant]
     Dosage: UNK
     Dates: start: 201301

REACTIONS (3)
  - Completed suicide [Fatal]
  - Delusion [Unknown]
  - General physical health deterioration [Unknown]
